FAERS Safety Report 5013305-0 (Version None)
Quarter: 2006Q2

REPORT INFORMATION
  Report Type: 
  Country: None (occurrence: None)
  Receive Date: 20060530
  Receipt Date: 20060406
  Transmission Date: 20061013
  Serious: Yes (Other)
  Sender: FDA-Public Use
  Company Number: US-GLAXOSMITHKLINE-A0600930A

PATIENT
  Age: 28 Year
  Sex: Female

DRUGS (4)
  1. WELLBUTRIN XL [Suspect]
     Indication: DRUG USE FOR UNKNOWN INDICATION
     Dosage: 450MG SEE DOSAGE TEXT
     Route: 048
  2. WELLBUTRIN SR [Suspect]
     Dosage: 100MG SEE DOSAGE TEXT
  3. ATIVAN [Concomitant]
  4. RISPERDAL [Concomitant]

REACTIONS (1)
  - GRAND MAL CONVULSION [None]
